FAERS Safety Report 13255438 (Version 1)
Quarter: 2017Q1

REPORT INFORMATION
  Report Type: Spontaneous
  Country: US (occurrence: US)
  Receive Date: 20170219
  Receipt Date: 20170219
  Transmission Date: 20170428
  Serious: Yes (Hospitalization)
  Sender: FDA-Public Use
  Company Number: None

PATIENT
  Age: 85 Year
  Sex: Male
  Weight: 82.7 kg

DRUGS (1)
  1. WARFARIN [Suspect]
     Active Substance: WARFARIN
     Indication: ATRIAL FIBRILLATION
     Dosage: 2 MG OTHER PO
     Route: 048
     Dates: start: 20030405, end: 20161117

REACTIONS (3)
  - Asthenia [None]
  - Gastrointestinal haemorrhage [None]
  - Fatigue [None]

NARRATIVE: CASE EVENT DATE: 20161116
